FAERS Safety Report 12533420 (Version 1)
Quarter: 2016Q3

REPORT INFORMATION
  Report Type: Spontaneous
  Country: US (occurrence: US)
  Receive Date: 20160706
  Receipt Date: 20160706
  Transmission Date: 20161109
  Serious: Yes (Hospitalization)
  Sender: FDA-Public Use
  Company Number: US-FRI-1000085844

PATIENT
  Sex: Female

DRUGS (2)
  1. VRAYLAR [Suspect]
     Active Substance: CARIPRAZINE
     Route: 048
     Dates: start: 201606
  2. VRAYLAR [Suspect]
     Active Substance: CARIPRAZINE
     Indication: BIPOLAR DISORDER
     Route: 048
     Dates: start: 201606, end: 201606

REACTIONS (1)
  - Overdose [Unknown]

NARRATIVE: CASE EVENT DATE: 201606
